FAERS Safety Report 6815784-2 (Version None)
Quarter: 2010Q3

REPORT INFORMATION
  Report Type: 
  Country: None (occurrence: None)
  Receive Date: 20100705
  Receipt Date: 20100629
  Transmission Date: 20110219
  Serious: Yes (Disabling, Other)
  Sender: FDA-Public Use
  Company Number: CA-MERCK-1006USA04463

PATIENT
  Age: 76 Year
  Sex: Female
  Weight: 54 kg

DRUGS (3)
  1. FOSAMAX [Suspect]
     Route: 065
  2. ACTONEL [Suspect]
     Route: 048
  3. SYNTHROID [Concomitant]
     Route: 048

REACTIONS (2)
  - GINGIVAL INFECTION [None]
  - PAIN IN JAW [None]
